FAERS Safety Report 23179257 (Version 5)
Quarter: 2024Q3

REPORT INFORMATION
  Report Type: Spontaneous
  Country: US (occurrence: US)
  Receive Date: 20231113
  Receipt Date: 20240730
  Transmission Date: 20241017
  Serious: Yes (Other)
  Sender: PFIZER
  Company Number: US-PFIZER INC-202300352603

PATIENT
  Age: 13 Year
  Sex: Male
  Weight: 42.1 kg

DRUGS (8)
  1. OXBRYTA [Suspect]
     Active Substance: VOXELOTOR
     Indication: Sickle cell anaemia
     Dosage: 900 MG, 1X/DAY
     Route: 048
     Dates: start: 202207, end: 202310
  2. OXBRYTA [Suspect]
     Active Substance: VOXELOTOR
     Dosage: 900 MG, DAILY
     Route: 048
     Dates: start: 20220719, end: 20230912
  3. OXBRYTA [Suspect]
     Active Substance: VOXELOTOR
     Dosage: 300MG TABLETS 3 TABSLETS DAILLY
     Route: 048
     Dates: start: 202207, end: 2023
  4. HYDROXYUREA [Concomitant]
     Active Substance: HYDROXYUREA
     Indication: Sickle cell disease
     Dosage: UNK
     Dates: start: 20140923, end: 20230912
  5. LISINOPRIL [Concomitant]
     Active Substance: LISINOPRIL
     Indication: Proteinuria
     Dosage: UNK
     Dates: start: 20201222
  6. SINGULAIR [Concomitant]
     Active Substance: MONTELUKAST SODIUM
     Indication: Sickle cell disease
     Dosage: UNK
  7. SINGULAIR [Concomitant]
     Active Substance: MONTELUKAST SODIUM
     Indication: Leukocytosis
  8. FOLIC ACID [Concomitant]
     Active Substance: FOLIC ACID
     Indication: Sickle cell disease
     Dosage: UNK

REACTIONS (9)
  - Liver disorder [Unknown]
  - Hepatic enzyme decreased [Not Recovered/Not Resolved]
  - Renal function test abnormal [Not Recovered/Not Resolved]
  - Hepatic enzyme increased [Recovered/Resolved]
  - Ocular icterus [Unknown]
  - Asthenia [Unknown]
  - Liver function test abnormal [Not Recovered/Not Resolved]
  - Off label use [Unknown]
  - Product dose omission issue [Unknown]

NARRATIVE: CASE EVENT DATE: 20220701
